FAERS Safety Report 15098403 (Version 1)
Quarter: 2018Q3

REPORT INFORMATION
  Report Type: Spontaneous
  Country: US (occurrence: US)
  Receive Date: 20180702
  Receipt Date: 20180702
  Transmission Date: 20181010
  Serious: Yes (Hospitalization)
  Sender: FDA-Public Use
  Company Number: US-PFIZER INC-2018260760

PATIENT
  Age: 53 Year
  Sex: Female

DRUGS (1)
  1. XELJANZ XR [Suspect]
     Active Substance: TOFACITINIB CITRATE
     Indication: MAST CELL ACTIVATION SYNDROME
     Dosage: 11 MG, 1X/DAY
     Route: 048

REACTIONS (3)
  - Eyelid oedema [Unknown]
  - Dyspnoea [Unknown]
  - Product use in unapproved indication [Unknown]
